FAERS Safety Report 5395224-3 (Version None)
Quarter: 2007Q3

REPORT INFORMATION
  Report Type: 
  Country: None (occurrence: None)
  Receive Date: 20070713
  Receipt Date: 20070420
  Transmission Date: 20080115
  Serious: Yes (Hospitalization)
  Sender: FDA-Public Use
  Company Number: US-JNJFOC-20061101752

PATIENT
  Age: 34 Year
  Sex: Female
  Weight: 86.637 kg

DRUGS (2)
  1. ORTHO EVRA [Suspect]
     Indication: CONTRACEPTION
     Dosage: TRANSDERMAL
     Route: 062
     Dates: start: 20020601, end: 20030927
  2. SYNTHROID [Concomitant]

REACTIONS (4)
  - ANGINA UNSTABLE [None]
  - APPLICATION SITE EXCORIATION [None]
  - APPLICATION SITE PRURITUS [None]
  - PULMONARY EMBOLISM [None]
